FAERS Safety Report 16864512 (Version 1)
Quarter: 2019Q3

REPORT INFORMATION
  Report Type: Spontaneous
  Country: IT (occurrence: IT)
  Receive Date: 20190928
  Receipt Date: 20190928
  Transmission Date: 20191005
  Serious: Yes (Hospitalization)
  Sender: FDA-Public Use
  Company Number: IT-ACCORD-155987

PATIENT
  Age: 88 Year
  Sex: Female

DRUGS (4)
  1. CARDIOASPIRIN [Suspect]
     Active Substance: ASPIRIN
     Indication: ACUTE MYOCARDIAL INFARCTION
     Dosage: STRENGTH: 100 MG
     Route: 048
     Dates: start: 20190501, end: 20190603
  2. CLOPIDOGREL [Suspect]
     Active Substance: CLOPIDOGREL BISULFATE
     Indication: ACUTE MYOCARDIAL INFARCTION
     Route: 048
     Dates: start: 20190501, end: 20190603
  3. TORVAST [Concomitant]
     Active Substance: ATORVASTATIN
     Dosage: STRENGTH: 80 MG
  4. BISOPROLOL ACTAVIS [Concomitant]
     Active Substance: BISOPROLOL

REACTIONS (2)
  - Anaemia [Unknown]
  - Rectal haemorrhage [Unknown]

NARRATIVE: CASE EVENT DATE: 20190603
